FAERS Safety Report 10578507 (Version 1)
Quarter: 2014Q4

REPORT INFORMATION
  Report Type: Spontaneous
  Country: US (occurrence: None)
  Receive Date: 20141106
  Receipt Date: 20141106
  Transmission Date: 20150529
  Serious: Yes (Other)
  Sender: FDA-Public Use
  Company Number: ALL1-2014-00870

PATIENT
  Age: 5 Year
  Sex: Male
  Weight: 17.2 kg

DRUGS (1)
  1. INTUNIV [Suspect]
     Active Substance: GUANFACINE HYDROCHLORIDE
     Indication: ATTENTION DEFICIT/HYPERACTIVITY DISORDER
     Route: 048
     Dates: start: 20140130, end: 20140201

REACTIONS (2)
  - Seizure [None]
  - Off label use [None]

NARRATIVE: CASE EVENT DATE: 20140130
